FAERS Safety Report 8902223 (Version 1)
Quarter: 2012Q4

REPORT INFORMATION
  Report Type: 
  Country: GB (occurrence: GB)
  Receive Date: 20121112
  Receipt Date: 20121112
  Transmission Date: 20130627
  Serious: Yes (Other)
  Sender: FDA-Public Use
  Company Number: GB-JNJFOC-20121103907

PATIENT
  Age: 76 Year
  Sex: Female
  Weight: 121 kg

DRUGS (14)
  1. XARELTO [Suspect]
     Indication: KNEE ARTHROPLASTY
     Route: 048
     Dates: start: 20121011, end: 20121016
  2. XARELTO [Suspect]
     Indication: THROMBOSIS PROPHYLAXIS
     Route: 048
     Dates: start: 20121011, end: 20121016
  3. PARACETAMOL [Concomitant]
     Route: 065
  4. BENDROFLUMETHIAZIDE [Concomitant]
     Route: 065
  5. CALCICHEW D3 [Concomitant]
     Route: 065
  6. GTN [Concomitant]
     Route: 065
  7. LANSOPRAZOLE [Concomitant]
     Route: 065
  8. LOSARTAN [Concomitant]
     Route: 065
  9. SALAZOPYRIN [Concomitant]
     Route: 065
  10. ATENOLOL [Concomitant]
     Route: 065
  11. ACETYLSALICYLIC ACID [Concomitant]
     Route: 065
  12. ANAESTHETICS [Concomitant]
     Route: 065
  13. FELODIPINE [Concomitant]
     Route: 065
  14. SIMVASTATIN [Concomitant]
     Route: 065

REACTIONS (1)
  - Hallucination, visual [Recovered/Resolved]
